FAERS Safety Report 4407174-7 (Version None)
Quarter: 2004Q3

REPORT INFORMATION
  Report Type: 
  Country: None (occurrence: None)
  Receive Date: 20040721
  Receipt Date: 20040713
  Transmission Date: 20050211
  Serious: Yes (Other)
  Sender: FDA-Public Use
  Company Number: 24567 (0)

PATIENT
  Age: 68 Year
  Sex: Female

DRUGS (8)
  1. ALDARA [Suspect]
     Indication: ACTINIC KERATOSIS
     Dosage: (0.1 SACHET, 3 IN 1 WEEK(S)), TOPICAL
     Route: 061
     Dates: start: 20040615, end: 20040708
  2. ALDACTAZIDE [Concomitant]
  3. CORGARD [Concomitant]
  4. LIPITOR [Concomitant]
  5. KLOR-CON [Concomitant]
  6. PREMARIN [Concomitant]
  7. SYNTHROID [Concomitant]
  8. PENICILLIN [Concomitant]

REACTIONS (12)
  - APPLICATION SITE DESQUAMATION [None]
  - APPLICATION SITE ERYTHEMA [None]
  - APPLICATION SITE OEDEMA [None]
  - CHEST PAIN [None]
  - DYSPHAGIA [None]
  - HEADACHE [None]
  - LYMPHADENOPATHY [None]
  - MUSCULOSKELETAL STIFFNESS [None]
  - NECK PAIN [None]
  - ODYNOPHAGIA [None]
  - SALIVA ALTERED [None]
  - THROMBOSIS [None]
